FAERS Safety Report 12270961 (Version 5)
Quarter: 2016Q4

REPORT INFORMATION
  Report Type: Report from Study
  Country: MX (occurrence: MX)
  Receive Date: 20160415
  Receipt Date: 20161216
  Transmission Date: 20170207
  Serious: Yes (Hospitalization, Other)
  Sender: FDA-Public Use
  Company Number: MX-BAYER-2016-068590

PATIENT
  Age: 68 Year
  Sex: Male
  Weight: 39 kg

DRUGS (4)
  1. NEXAVAR [Suspect]
     Active Substance: SORAFENIB
     Indication: HEPATOCELLULAR CARCINOMA
     Dosage: 400 MG, QD
     Route: 048
     Dates: start: 20110711
  2. GLUTAMINE [Concomitant]
     Active Substance: GLUTAMINE
     Indication: HEPATOCELLULAR CARCINOMA
  3. CIPROFLOXACIN. [Concomitant]
     Active Substance: CIPROFLOXACIN
     Indication: HEPATOCELLULAR CARCINOMA
     Dosage: UNK
  4. GOSERELIN [Concomitant]
     Active Substance: GOSERELIN
     Indication: HEPATOCELLULAR CARCINOMA
     Dosage: UNK

REACTIONS (13)
  - Chest pain [Recovered/Resolved]
  - Neoplasm malignant [Unknown]
  - General physical health deterioration [Not Recovered/Not Resolved]
  - Angina pectoris [Unknown]
  - Asthenia [Not Recovered/Not Resolved]
  - Lung disorder [Unknown]
  - Cardiac failure [Not Recovered/Not Resolved]
  - Musculoskeletal pain [Not Recovered/Not Resolved]
  - Malaise [Unknown]
  - Cardiac disorder [Unknown]
  - Respiratory failure [Not Recovered/Not Resolved]
  - Fatigue [Not Recovered/Not Resolved]
  - Chest pain [Unknown]

NARRATIVE: CASE EVENT DATE: 2016
